FAERS Safety Report 19483726 (Version 1)
Quarter: 2021Q3

REPORT INFORMATION
  Report Type: Spontaneous
  Country: US (occurrence: US)
  Receive Date: 20210701
  Receipt Date: 20210701
  Transmission Date: 20211014
  Serious: Yes (Death, Other)
  Sender: FDA-Public Use
  Company Number: US-AMGEN-USASP2021096899

PATIENT
  Age: 68 Year
  Sex: Female

DRUGS (8)
  1. DARBEPOETIN ALFA [Suspect]
     Active Substance: DARBEPOETIN ALFA
     Indication: ANAEMIA
     Dosage: 150 MICROGRAM, QWK
     Route: 065
  2. RITUXIMAB. [Suspect]
     Active Substance: RITUXIMAB
     Indication: DIFFUSE LARGE B-CELL LYMPHOMA REFRACTORY
     Dosage: UNK
     Route: 065
  3. CISPLATIN. [Concomitant]
     Active Substance: CISPLATIN
     Indication: DIFFUSE LARGE B-CELL LYMPHOMA REFRACTORY
  4. DEXAMETHASONE. [Concomitant]
     Active Substance: DEXAMETHASONE
     Indication: DIFFUSE LARGE B-CELL LYMPHOMA REFRACTORY
     Dosage: UNK
  5. TOCILIZUMAB. [Concomitant]
     Active Substance: TOCILIZUMAB
  6. GEMCITABINE. [Concomitant]
     Active Substance: GEMCITABINE
     Indication: DIFFUSE LARGE B-CELL LYMPHOMA REFRACTORY
  7. IRON [Concomitant]
     Active Substance: IRON
     Route: 042
  8. PHYTONADIONE. [Concomitant]
     Active Substance: PHYTONADIONE
     Indication: PROPHYLAXIS
     Dosage: 10 MILLIGRAM, QD
     Route: 058

REACTIONS (5)
  - Anaemia [Unknown]
  - Neutropenia [Unknown]
  - Diffuse large B-cell lymphoma recurrent [Fatal]
  - Thrombocytopenia [Unknown]
  - Cytokine release syndrome [Unknown]
